FAERS Safety Report 5751354-5 (Version None)
Quarter: 2008Q2

REPORT INFORMATION
  Report Type: 
  Country: None (occurrence: None)
  Receive Date: 20080528
  Receipt Date: 20080519
  Transmission Date: 20081010
  Serious: Yes (Hospitalization, Other)
  Sender: FDA-Public Use
  Company Number: US-AMGEN-STX273053

PATIENT
  Sex: Female

DRUGS (20)
  1. ENBREL [Suspect]
     Indication: RHEUMATOID ARTHRITIS
     Route: 058
     Dates: start: 19990501
  2. METHOTREXATE [Concomitant]
     Route: 058
     Dates: start: 19990101
  3. MOBIC [Concomitant]
  4. ESTRACE [Concomitant]
  5. IMITREX [Concomitant]
  6. VITAMIN CAP [Concomitant]
  7. VITAMIN C AND E [Concomitant]
  8. TPN [Concomitant]
  9. FOLIC ACID [Concomitant]
  10. NEURONTIN [Concomitant]
  11. LIPITOR [Concomitant]
  12. TOPROL-XL [Concomitant]
  13. LEUCOVORIN CALCIUM [Concomitant]
  14. PRILOSEC [Concomitant]
  15. GRAPE SEED [Concomitant]
  16. CALCIUM WITH VITAMIN D [Concomitant]
  17. VALTREX [Concomitant]
  18. ALLEGRA [Concomitant]
     Dates: end: 20080506
  19. CLARITIN [Concomitant]
  20. UNSPECIFIED STEROIDS [Concomitant]

REACTIONS (3)
  - HIP ARTHROPLASTY [None]
  - IMPAIRED HEALING [None]
  - SINUSITIS [None]
